FAERS Safety Report 15097180 (Version 8)
Quarter: 2018Q4

REPORT INFORMATION
  Report Type: Report from Study
  Country: AU (occurrence: AU)
  Receive Date: 20180702
  Receipt Date: 20181211
  Transmission Date: 20190204
  Serious: Yes (Other)
  Sender: FDA-Public Use
  Company Number: AU-B.I. PHARMACEUTICALS,INC./RIDGEFIELD-2018-BI-033143

PATIENT
  Age: 70 Year
  Sex: Female
  Weight: 66.5 kg

DRUGS (12)
  1. VITAMIN D [Concomitant]
     Active Substance: CHOLECALCIFEROL
     Indication: PRODUCT USED FOR UNKNOWN INDICATION
     Route: 048
  2. NEXIUM [Concomitant]
     Active Substance: ESOMEPRAZOLE MAGNESIUM
     Indication: GASTROOESOPHAGEAL REFLUX DISEASE
     Route: 048
     Dates: start: 201406
  3. NEXIUM [Concomitant]
     Active Substance: ESOMEPRAZOLE MAGNESIUM
     Indication: SCLERODERMA
     Route: 048
     Dates: start: 201712
  4. DOXYCYCLINE. [Concomitant]
     Active Substance: DOXYCYCLINE
     Indication: LOWER RESPIRATORY TRACT INFECTION
     Route: 048
     Dates: start: 201506
  5. FELODUR ER [Concomitant]
     Active Substance: FELODIPINE
     Indication: RAYNAUD^S PHENOMENON
     Route: 048
     Dates: start: 20160423
  6. CODEINE LINCTUS [Concomitant]
     Active Substance: CHLOROFORM\CODEINE PHOSPHATE\DRIMIA MARITIMA BULB
     Indication: COUGH
     Route: 048
     Dates: start: 201402
  7. PARACETAMOL [Concomitant]
     Active Substance: ACETAMINOPHEN
     Indication: PARONYCHIA
     Route: 048
     Dates: start: 20170125
  8. BIBF 1120 [Suspect]
     Active Substance: NINTEDANIB
     Indication: SYSTEMIC SCLERODERMA
     Route: 048
     Dates: start: 20160627, end: 20170120
  9. FELODUR ER [Concomitant]
     Active Substance: FELODIPINE
     Indication: SCLERODERMA
  10. FELODUR ER [Concomitant]
     Active Substance: FELODIPINE
     Indication: BLOOD PRESSURE MEASUREMENT
  11. MYCOPHENOLATE MOFETIL. [Concomitant]
     Active Substance: MYCOPHENOLATE MOFETIL
     Indication: SCLERODERMA
     Route: 048
     Dates: start: 201608
  12. BIBF 1120 [Suspect]
     Active Substance: NINTEDANIB
     Indication: INTERSTITIAL LUNG DISEASE
     Route: 048
     Dates: start: 20170125, end: 20180521

REACTIONS (2)
  - Cerebral amyloid angiopathy [Not Recovered/Not Resolved]
  - Cerebral microhaemorrhage [Not Recovered/Not Resolved]

NARRATIVE: CASE EVENT DATE: 201706
